FAERS Safety Report 24085474 (Version 1)
Quarter: 2024Q3

REPORT INFORMATION
  Report Type: Spontaneous
  Country: US (occurrence: None)
  Receive Date: 20240712
  Receipt Date: 20240712
  Transmission Date: 20241017
  Serious: No
  Sender: Public
  Company Number: None

PATIENT
  Age: 70 Year
  Sex: Male
  Weight: 69.75 kg

DRUGS (1)
  1. JAKAFI [Suspect]
     Active Substance: RUXOLITINIB
     Dosage: 5 MG TWICE A DAY ORAL ?
     Route: 048
     Dates: start: 20240410

REACTIONS (4)
  - Weight decreased [None]
  - Decreased appetite [None]
  - Drooling [None]
  - Facial paresis [None]

NARRATIVE: CASE EVENT DATE: 20240712
